FAERS Safety Report 23397674 (Version 2)
Quarter: 2024Q1

REPORT INFORMATION
  Report Type: Spontaneous
  Country: US (occurrence: US)
  Receive Date: 20240112
  Receipt Date: 20240117
  Transmission Date: 20240409
  Serious: No
  Sender: FDA-Public Use
  Company Number: US-PFIZER INC-PV202400003458

PATIENT
  Age: 81 Year
  Sex: Female
  Weight: 51.26 kg

DRUGS (1)
  1. CLINDAMYCIN PHOSPHATE [Suspect]
     Active Substance: CLINDAMYCIN PHOSPHATE
     Dosage: UNK

REACTIONS (4)
  - Vulvovaginal burning sensation [Unknown]
  - Urine analysis abnormal [Unknown]
  - Poor quality product administered [Unknown]
  - Product packaging quantity issue [Unknown]
